FAERS Safety Report 20940502 (Version 1)
Quarter: 2022Q2

REPORT INFORMATION
  Report Type: Spontaneous
  Country: JP (occurrence: JP)
  Receive Date: 20220609
  Receipt Date: 20220609
  Transmission Date: 20220721
  Serious: Yes (Death, Hospitalization, Other)
  Sender: FDA-Public Use
  Company Number: JP-MSD-2201JPN003133J

PATIENT
  Age: 7 Decade
  Sex: Female

DRUGS (8)
  1. KEYTRUDA [Suspect]
     Active Substance: PEMBROLIZUMAB
     Indication: Uterine cancer
     Dosage: 200 MILLIGRAM, Q3W
     Route: 041
     Dates: start: 20220107, end: 2022
  2. LENVIMA [Suspect]
     Active Substance: LENVATINIB
     Indication: Uterine cancer
     Dosage: 20 MILLIGRAM, QD
     Route: 048
     Dates: start: 20220107, end: 20220125
  3. LENVIMA [Suspect]
     Active Substance: LENVATINIB
     Dosage: 20 MILLIGRAM, 5 X PER WEEK
     Route: 048
     Dates: start: 2022, end: 202205
  4. LANSOPRAZOLE [Concomitant]
     Active Substance: LANSOPRAZOLE
     Dosage: 20 MILLIGRAM, QD
     Route: 048
  5. GLYCOSAMINOGLYCANS [Concomitant]
     Active Substance: GLYCOSAMINOGLYCANS
     Indication: Palmar-plantar erythrodysaesthesia syndrome
     Dosage: UNK
  6. LEVOTHYROXINE SODIUM [Concomitant]
     Active Substance: LEVOTHYROXINE SODIUM
     Indication: Hypothyroidism
     Dosage: 50 MILLIGRAM, QD
     Route: 048
  7. BETAMETHASONE DIPROPIONATE [Concomitant]
     Active Substance: BETAMETHASONE DIPROPIONATE
     Dosage: UNK
  8. CORTRIL [Concomitant]
     Active Substance: HYDROCORTISONE
     Indication: Hypoparathyroidism
     Dosage: 15 MILLIGRAM, QD
     Route: 048

REACTIONS (9)
  - Immune-mediated hypothyroidism [Recovered/Resolved]
  - Malignant neoplasm progression [Fatal]
  - Anaemia [Recovered/Resolved]
  - Hypoparathyroidism [Recovered/Resolved]
  - Malaise [Recovered/Resolved]
  - Hypertension [Recovered/Resolved]
  - Decreased appetite [Recovered/Resolved]
  - Abdominal pain upper [Recovered/Resolved]
  - Hypotension [Recovered/Resolved]

NARRATIVE: CASE EVENT DATE: 20220101
